FAERS Safety Report 6177921-5 (Version None)
Quarter: 2009Q2

REPORT INFORMATION
  Report Type: 
  Country: None (occurrence: None)
  Receive Date: 20090501
  Receipt Date: 20090501
  Transmission Date: 20091009
  Serious: No
  Sender: FDA-Public Use
  Company Number: None

PATIENT
  Sex: Female

DRUGS (1)
  1. PRINZIDE [Suspect]
     Indication: HYPERTENSION
     Dosage: 10/12.5 MG ONCE DAILY PO
     Route: 048
     Dates: start: 20090217

REACTIONS (1)
  - TABLET ISSUE [None]
